FAERS Safety Report 9142303 (Version 2)
Quarter: 2013Q1

REPORT INFORMATION
  Report Type: Spontaneous
  Country: JP (occurrence: JP)
  Receive Date: 20130305
  Receipt Date: 20130314
  Transmission Date: 20140127
  Serious: Yes (Life-Threatening)
  Sender: FDA-Public Use
  Company Number: JP-MYLANLABS-2013S1004220

PATIENT
  Sex: 0

DRUGS (9)
  1. SEVOFLURANE [Suspect]
     Indication: GENERAL ANAESTHESIA
     Dosage: 5% -3.5 HRS, 1.0% -15MIN
     Route: 064
     Dates: start: 20091017, end: 20091017
  2. REMIFENTANIL [Suspect]
     Indication: GENERAL ANAESTHESIA
     Route: 064
     Dates: start: 20091017, end: 20091017
  3. FENTANYL [Concomitant]
     Indication: GENERAL ANAESTHESIA
     Route: 064
     Dates: start: 20091017, end: 20091017
  4. THIOPENTAL [Concomitant]
     Indication: GENERAL ANAESTHESIA
     Route: 064
     Dates: start: 20091017, end: 20091017
  5. ROPIVACAINE [Concomitant]
     Indication: GENERAL ANAESTHESIA
     Dosage: 2MG/ML
     Route: 064
     Dates: start: 20091017, end: 20091017
  6. ROPIVACAINE [Concomitant]
     Indication: ANALGESIC THERAPY
     Dosage: 2MG/ML
     Route: 064
     Dates: start: 20091017, end: 20091017
  7. ROPIVACAINE [Concomitant]
     Indication: GENERAL ANAESTHESIA
     Dosage: 7.5MG/ML
     Route: 064
     Dates: start: 20091017, end: 20091017
  8. ROPIVACAINE [Concomitant]
     Indication: ANALGESIC THERAPY
     Dosage: 7.5MG/ML
     Route: 064
     Dates: start: 20091017, end: 20091017
  9. ROCURONIUM [Concomitant]
     Indication: GENERAL ANAESTHESIA
     Dosage: 7.5MG/ML
     Route: 064
     Dates: start: 20091017, end: 20091017

REACTIONS (2)
  - Foetal heart rate deceleration [Recovered/Resolved]
  - Premature baby [Unknown]
